FAERS Safety Report 24982682 (Version 3)
Quarter: 2025Q2

REPORT INFORMATION
  Report Type: Spontaneous
  Country: US (occurrence: US)
  Receive Date: 20250218
  Receipt Date: 20250612
  Transmission Date: 20250717
  Serious: Yes (Hospitalization, Other)
  Sender: OTSUKA
  Company Number: US-OTSUKA-2025_003598

PATIENT
  Age: 78 Year
  Sex: Female

DRUGS (30)
  1. ABILIFY [Suspect]
     Active Substance: ARIPIPRAZOLE
     Indication: Product used for unknown indication
     Route: 065
     Dates: start: 202409
  2. INGREZZA [Suspect]
     Active Substance: VALBENAZINE DITOSYLATE
     Indication: Dyskinesia
     Dosage: 60 MG, QD
     Route: 048
     Dates: start: 20220718
  3. INGREZZA [Suspect]
     Active Substance: VALBENAZINE DITOSYLATE
     Dosage: 80 MG, QD
     Route: 048
     Dates: start: 20220919, end: 20230424
  4. INGREZZA [Suspect]
     Active Substance: VALBENAZINE DITOSYLATE
     Dosage: 40 MG, QD
     Route: 048
     Dates: start: 20230428, end: 20230528
  5. INGREZZA [Suspect]
     Active Substance: VALBENAZINE DITOSYLATE
     Dosage: 80 MG, QD
     Route: 048
     Dates: start: 20230603
  6. INGREZZA [Suspect]
     Active Substance: VALBENAZINE DITOSYLATE
     Dosage: 60 MG, QD
     Route: 048
     Dates: start: 20230605, end: 20240314
  7. INGREZZA [Suspect]
     Active Substance: VALBENAZINE DITOSYLATE
     Dosage: 80 MG, QD
     Route: 048
     Dates: start: 20240315, end: 20240411
  8. INGREZZA [Suspect]
     Active Substance: VALBENAZINE DITOSYLATE
     Dosage: 60 MG, QD
     Route: 048
     Dates: start: 20240412
  9. INGREZZA [Suspect]
     Active Substance: VALBENAZINE DITOSYLATE
     Route: 065
     Dates: start: 20240427
  10. INGREZZA [Suspect]
     Active Substance: VALBENAZINE DITOSYLATE
     Dosage: 80 MG, QD
     Route: 048
     Dates: start: 20240505
  11. LEVOCETIRIZINE DIHYDROCHLORIDE [Concomitant]
     Active Substance: LEVOCETIRIZINE DIHYDROCHLORIDE
     Indication: Product used for unknown indication
     Route: 065
  12. BACLOFEN [Concomitant]
     Active Substance: BACLOFEN
     Indication: Product used for unknown indication
     Route: 065
  13. CYMBALTA [Concomitant]
     Active Substance: DULOXETINE HYDROCHLORIDE
     Indication: Product used for unknown indication
     Route: 065
  14. DULCOLAX (BISACODYL) [Concomitant]
     Active Substance: BISACODYL
     Indication: Product used for unknown indication
     Route: 065
  15. DYAZIDE [Concomitant]
     Active Substance: HYDROCHLOROTHIAZIDE\TRIAMTERENE
     Indication: Product used for unknown indication
     Route: 065
  16. FERROUS SULFATE [Concomitant]
     Active Substance: FERROUS SULFATE
     Indication: Product used for unknown indication
     Route: 065
  17. MOMETASONE FUROATE [Concomitant]
     Active Substance: MOMETASONE FUROATE
     Indication: Product used for unknown indication
     Route: 065
  18. FOLIC ACID [Concomitant]
     Active Substance: FOLIC ACID
     Indication: Product used for unknown indication
     Route: 065
  19. KLONOPIN [Concomitant]
     Active Substance: CLONAZEPAM
     Indication: Product used for unknown indication
     Route: 065
  20. KLONOPIN [Concomitant]
     Active Substance: CLONAZEPAM
     Route: 065
     Dates: start: 202409
  21. KLONOPIN [Concomitant]
     Active Substance: CLONAZEPAM
     Route: 065
     Dates: start: 202409
  22. LAMOTRIGINE [Concomitant]
     Active Substance: LAMOTRIGINE
     Indication: Product used for unknown indication
     Route: 065
  23. LEVOTHYROXINE [Concomitant]
     Active Substance: LEVOTHYROXINE
     Indication: Product used for unknown indication
     Route: 065
  24. VITAMIN C [Concomitant]
     Active Substance: ASCORBIC ACID
     Indication: Product used for unknown indication
     Route: 065
  25. VITAMIN D3 [Concomitant]
     Active Substance: CHOLECALCIFEROL
     Indication: Product used for unknown indication
     Route: 065
  26. CYANOCOBALAMIN [Concomitant]
     Active Substance: CYANOCOBALAMIN
     Indication: Product used for unknown indication
     Route: 065
  27. VOLTAREN [Concomitant]
     Active Substance: DICLOFENAC SODIUM
     Indication: Product used for unknown indication
     Route: 065
  28. VRAYLAR [Concomitant]
     Active Substance: CARIPRAZINE
     Indication: Product used for unknown indication
     Route: 065
  29. DULOXETINE [Concomitant]
     Active Substance: DULOXETINE
     Indication: Product used for unknown indication
     Route: 065
  30. VITAMIN B COMPLEX [Concomitant]
     Active Substance: CYANOCOBALAMIN\DEXPANTHENOL\NIACINAMIDE\PYRIDOXINE HYDROCHLORIDE\RIBOFLAVIN 5^-PHOSPHATE SODIUM\THIA
     Indication: Product used for unknown indication
     Route: 065

REACTIONS (9)
  - Dementia [Unknown]
  - Suicide attempt [Unknown]
  - Confusional state [Unknown]
  - Gait disturbance [Unknown]
  - Memory impairment [Not Recovered/Not Resolved]
  - Tremor [Unknown]
  - Salivary hypersecretion [Unknown]
  - Intentional overdose [Unknown]
  - Underdose [Unknown]

NARRATIVE: CASE EVENT DATE: 20240801
